FAERS Safety Report 20457689 (Version 4)
Quarter: 2023Q4

REPORT INFORMATION
  Report Type: Report from Study
  Country: CR (occurrence: CR)
  Receive Date: 20220210
  Receipt Date: 20231129
  Transmission Date: 20240110
  Serious: Yes (Life-Threatening, Other)
  Sender: FDA-Public Use
  Company Number: CR-NOVARTISPH-NVSC2022CR029075

PATIENT
  Age: 55 Year
  Sex: Female

DRUGS (2)
  1. SECUKINUMAB [Suspect]
     Active Substance: SECUKINUMAB
     Indication: Psoriatic arthropathy
     Dosage: 150 MG, QMO
     Route: 058
     Dates: start: 20211210
  2. SECUKINUMAB [Suspect]
     Active Substance: SECUKINUMAB
     Dosage: 300 MG, QMO
     Route: 058

REACTIONS (11)
  - Feeling abnormal [Recovering/Resolving]
  - Pain [Recovering/Resolving]
  - Colitis [Unknown]
  - Stress [Unknown]
  - Psoriasis [Recovering/Resolving]
  - Pain in extremity [Unknown]
  - Urinary tract infection [Unknown]
  - Hepatic steatosis [Unknown]
  - Abdominal pain [Unknown]
  - Thyroid mass [Unknown]
  - Rash papular [Unknown]

NARRATIVE: CASE EVENT DATE: 20221101
